FAERS Safety Report 13850491 (Version 3)
Quarter: 2018Q1

REPORT INFORMATION
  Report Type: Report from Study
  Country: CA (occurrence: CA)
  Receive Date: 20170810
  Receipt Date: 20180108
  Transmission Date: 20180508
  Serious: Yes (Hospitalization, Other)
  Sender: FDA-Public Use
  Company Number: CA-AMGEN-CANSL2017118051

PATIENT
  Age: 86 Year
  Sex: Male
  Weight: 80 kg

DRUGS (32)
  1. INSULIN [Concomitant]
     Active Substance: INSULIN NOS
     Indication: DIABETES MELLITUS
  2. AVENTYL [Concomitant]
     Active Substance: NORTRIPTYLINE HYDROCHLORIDE
  3. ACETAMINOPHEN. [Concomitant]
     Active Substance: ACETAMINOPHEN
  4. VITAMIN D [Concomitant]
     Active Substance: CHOLECALCIFEROL
  5. ALSARTAN [Concomitant]
     Active Substance: LOSARTAN POTASSIUM
  6. SYNTHROID [Concomitant]
     Active Substance: LEVOTHYROXINE SODIUM
  7. FLUVIRAL [Concomitant]
     Active Substance: INFLUENZA VIRUS VACCINE
  8. ZINC. [Concomitant]
     Active Substance: ZINC
  9. INFLUENZA [Concomitant]
     Active Substance: INFLUENZA VIRUS VACCINE
  10. ZITHROMAX [Concomitant]
     Active Substance: AZITHROMYCIN DIHYDRATE
  11. FLOVENT HFA [Concomitant]
     Active Substance: FLUTICASONE PROPIONATE
  12. ADALAT CC [Concomitant]
     Active Substance: NIFEDIPINE
  13. HYDROMORPH CONTIN [Concomitant]
     Active Substance: HYDROMORPHONE
  14. LYRICA [Concomitant]
     Active Substance: PREGABALIN
  15. LIPITOR [Concomitant]
     Active Substance: ATORVASTATIN CALCIUM
  16. QUADRACEL [Concomitant]
     Active Substance: DIPHTHERIA AND TETANUS TOXOIDS AND ACELLULAR PERTUSSIS ADSORBED AND INACTIVATED POLIOVIRUS VACCINE
  17. SYMBICORT [Concomitant]
     Active Substance: BUDESONIDE\FORMOTEROL FUMARATE DIHYDRATE
  18. ACTONEL [Concomitant]
     Active Substance: RISEDRONATE SODIUM
  19. NOVO-SPIROZINE [Concomitant]
  20. APO-GLICLAZIDE [Concomitant]
     Active Substance: GLICLAZIDE
  21. JANUMET [Concomitant]
     Active Substance: METFORMIN HYDROCHLORIDE\SITAGLIPTIN PHOSPHATE
  22. ADVAIR HFA [Concomitant]
     Active Substance: FLUTICASONE PROPIONATE\SALMETEROL XINAFOATE
  23. TAMSULOSIN [Concomitant]
     Active Substance: TAMSULOSIN
  24. PROLIA [Suspect]
     Active Substance: DENOSUMAB
     Indication: PRODUCT USED FOR UNKNOWN INDICATION
     Dosage: UNK
     Route: 065
     Dates: start: 20140722
  25. TUSSIONEX PENNKINETIC [Concomitant]
     Active Substance: CHLORPHENIRAMINE\HYDROCODONE
  26. PALAFER [Concomitant]
     Active Substance: FERROUS FUMARATE
  27. ADACEL TDAP [Concomitant]
     Active Substance: TETANUS TOXOID, REDUCED DIPHTHERIA TOXOID AND ACELLULAR PERTUSSIS VACCINE ADSORBED, TDAP
  28. SENOKOT [Concomitant]
     Active Substance: SENNOSIDES
  29. ASA [Concomitant]
     Active Substance: ASPIRIN
  30. VITAMIN B12 [Concomitant]
     Active Substance: CYANOCOBALAMIN
  31. PNEUMOVAX 23 [Concomitant]
     Active Substance: PNEUMOCOCCAL VACCINE, POLYVALENT 23
  32. TYLENOL WITH CODEINE [Concomitant]
     Active Substance: ACETAMINOPHEN\CODEINE PHOSPHATE

REACTIONS (1)
  - Cerebrovascular accident [Unknown]

NARRATIVE: CASE EVENT DATE: 20170502
